FAERS Safety Report 13843972 (Version 2)
Quarter: 2017Q3

REPORT INFORMATION
  Report Type: Spontaneous
  Country: CH (occurrence: CH)
  Receive Date: 20170808
  Receipt Date: 20170810
  Transmission Date: 20171127
  Serious: Yes (Other)
  Sender: FDA-Public Use
  Company Number: CH-009507513-1708CHE002419

PATIENT
  Age: 23 Year
  Sex: Female

DRUGS (2)
  1. CERAZETTE [Suspect]
     Active Substance: DESOGESTREL
     Indication: CONTRACEPTION
     Dosage: UNK
     Route: 048
     Dates: end: 201707
  2. IMPLANON [Suspect]
     Active Substance: ETONOGESTREL
     Indication: CONTRACEPTION
     Dosage: UNK
     Dates: start: 20170705, end: 20170731

REACTIONS (3)
  - Pregnancy on oral contraceptive [Not Recovered/Not Resolved]
  - Exposure during pregnancy [Recovered/Resolved]
  - Amenorrhoea [Not Recovered/Not Resolved]

NARRATIVE: CASE EVENT DATE: 2017
